FAERS Safety Report 7497015-6 (Version None)
Quarter: 2011Q2

REPORT INFORMATION
  Report Type: 
  Country: None (occurrence: None)
  Receive Date: 20110523
  Receipt Date: 20110519
  Transmission Date: 20111010
  Serious: Yes (Death, Hospitalization)
  Sender: FDA-Public Use
  Company Number: US-BRISTOL-MYERS SQUIBB COMPANY-15714421

PATIENT
  Age: 85 Year
  Sex: Male

DRUGS (12)
  1. FLUCONAZOLE [Concomitant]
     Route: 048
  2. CRESTOR [Concomitant]
  3. PREDNISONE [Concomitant]
     Dosage: 70MG,60MG,50MG,40MG,30MG,20MG,10MG,5MG FOR 7 DAYS
     Route: 048
  4. LISINOPRIL [Concomitant]
  5. LYRICA [Concomitant]
     Route: 048
  6. CIPROFLOXACIN [Concomitant]
     Dosage: Q12 HRS
     Route: 048
  7. MAGNESIUM OXIDE [Concomitant]
  8. IPILIMUMAB [Suspect]
     Indication: MALIGNANT MELANOMA
     Dosage: 10MG/KG NO OF COURSES: 15
     Route: 042
     Dates: start: 20080101, end: 20110406
  9. FOLIC ACID [Concomitant]
     Route: 048
  10. NIASPAN [Concomitant]
  11. SENNA-MINT WAF [Concomitant]
     Dosage: 1DF=1TAB
     Route: 048
  12. PLAVIX [Concomitant]

REACTIONS (2)
  - MYOCARDIAL INFARCTION [None]
  - THROMBOCYTOPENIA [None]
